FAERS Safety Report 6537245-0 (Version None)
Quarter: 2010Q1

REPORT INFORMATION
  Report Type: 
  Country: None (occurrence: None)
  Receive Date: 20100114
  Receipt Date: 20100108
  Transmission Date: 20100710
  Serious: Yes (Death)
  Sender: FDA-Public Use
  Company Number: JP-ROCHE-679090

PATIENT
  Age: 53 Year
  Sex: Male

DRUGS (1)
  1. TAMIFLU [Suspect]
     Dosage: STOP DATE: JANUARY 2010
     Route: 048
     Dates: start: 20100101

REACTIONS (1)
  - DISEASE PROGRESSION [None]
